FAERS Safety Report 19116110 (Version 2)
Quarter: 2021Q2

REPORT INFORMATION
  Report Type: Spontaneous
  Country: US (occurrence: US)
  Receive Date: 20210409
  Receipt Date: 20210504
  Transmission Date: 20210717
  Serious: No
  Sender: FDA-Public Use
  Company Number: US-MYLANLABS-2021M1020198

PATIENT
  Sex: Female
  Weight: 52 kg

DRUGS (1)
  1. ESTRADIOL VAGINAL CREAM USP [Suspect]
     Active Substance: ESTRADIOL
     Indication: URETHRAL CARUNCLE
     Dosage: EVERY OTHER DAY
     Route: 067
     Dates: end: 20210330

REACTIONS (4)
  - Product dose omission issue [Unknown]
  - Off label use [Unknown]
  - Product physical consistency issue [Unknown]
  - Product availability issue [Unknown]
